FAERS Safety Report 10909311 (Version 1)
Quarter: 2015Q1

REPORT INFORMATION
  Report Type: Spontaneous
  Country: CH (occurrence: CH)
  Receive Date: 20150312
  Receipt Date: 20150312
  Transmission Date: 20150721
  Serious: Yes (Other)
  Sender: FDA-Public Use
  Company Number: CH-ASTRAZENECA-2015SE22855

PATIENT
  Age: 44 Year
  Sex: Female

DRUGS (9)
  1. DOLOPHINE [Suspect]
     Active Substance: METHADONE HYDROCHLORIDE
     Dates: start: 20141204, end: 20141205
  2. SEROQUEL [Suspect]
     Active Substance: QUETIAPINE FUMARATE
     Route: 048
     Dates: start: 20141209, end: 20141209
  3. DOLOPHINE [Suspect]
     Active Substance: METHADONE HYDROCHLORIDE
     Dates: start: 20141210, end: 20141215
  4. VENLAFAXIN [Concomitant]
     Active Substance: VENLAFAXINE HYDROCHLORIDE
     Dates: start: 20141202, end: 20141218
  5. RITALIN [Concomitant]
     Active Substance: METHYLPHENIDATE HYDROCHLORIDE
     Dates: start: 20141202, end: 20141218
  6. SURMONTIL [Concomitant]
     Active Substance: TRIMIPRAMINE MALEATE
     Dates: start: 20141205, end: 20141215
  7. VALIUM [Concomitant]
     Active Substance: DIAZEPAM
     Dates: start: 20141202, end: 20141217
  8. DOLOPHINE [Suspect]
     Active Substance: METHADONE HYDROCHLORIDE
     Dates: start: 20141203, end: 20141203
  9. DOLOPHINE [Suspect]
     Active Substance: METHADONE HYDROCHLORIDE
     Dates: start: 20141206, end: 20141209

REACTIONS (3)
  - Oedema peripheral [Recovered/Resolved]
  - Weight increased [Recovered/Resolved]
  - Exposure during pregnancy [Unknown]

NARRATIVE: CASE EVENT DATE: 201412
